FAERS Safety Report 6293874-3 (Version None)
Quarter: 2009Q3

REPORT INFORMATION
  Report Type: 
  Country: None (occurrence: None)
  Receive Date: 20090730
  Receipt Date: 20090717
  Transmission Date: 20100115
  Serious: Yes (Hospitalization)
  Sender: FDA-Public Use
  Company Number: 8049175

PATIENT
  Age: 3 Year
  Sex: Female
  Weight: 9.97 kg

DRUGS (1)
  1. KEPPRA [Suspect]
     Indication: CONVULSION
     Dosage: PO
     Route: 048

REACTIONS (2)
  - CHOLECYSTECTOMY [None]
  - HAEMOLYTIC ANAEMIA [None]
